FAERS Safety Report 6566264-3 (Version None)
Quarter: 2010Q1

REPORT INFORMATION
  Report Type: 
  Country: None (occurrence: None)
  Receive Date: 20100127
  Receipt Date: 20100113
  Transmission Date: 20100710
  Serious: Yes (Other)
  Sender: FDA-Public Use
  Company Number: 004440

PATIENT
  Sex: Female
  Weight: 85.4 kg

DRUGS (1)
  1. GLYCOLAX [Suspect]
     Indication: INTESTINAL OBSTRUCTION
     Dosage: 6 OZ BID; STARTED ^8 YEARS^ AGO ORAL
     Route: 048

REACTIONS (1)
  - DIABETES MELLITUS [None]
